FAERS Safety Report 8816825 (Version 1)
Quarter: 2012Q4

REPORT INFORMATION
  Report Type: Spontaneous
  Country: JP (occurrence: None)
  Receive Date: 20121001
  Receipt Date: 20121001
  Transmission Date: 20130627
  Serious: Yes (Other)
  Sender: FDA-Public Use
  Company Number: 2010JP005772

PATIENT
  Age: 2 Year
  Sex: Female

DRUGS (4)
  1. PROGRAF [Suspect]
     Indication: PROPHYLAXIS AGAINST GRAFT VERSUS HOST DISEASE
  2. CICLOSPORIN [Suspect]
  3. METHOTREXATE [Concomitant]
  4. CYCLOPHOSPHAMIDE [Concomitant]

REACTIONS (8)
  - Drug ineffective [None]
  - Acute graft versus host disease [None]
  - Chronic graft versus host disease [None]
  - Chest pain [None]
  - Food allergy [None]
  - Swelling face [None]
  - Diarrhoea [None]
  - Abdominal pain [None]
